FAERS Safety Report 7915712-2 (Version None)
Quarter: 2011Q4

REPORT INFORMATION
  Report Type: 
  Country: None (occurrence: None)
  Receive Date: 20111115
  Receipt Date: 20111102
  Transmission Date: 20120403
  Serious: Yes (Hospitalization)
  Sender: FDA-Public Use
  Company Number: US-GLAXOSMITHKLINE-B0756275A

PATIENT
  Age: 60 Year
  Sex: Female

DRUGS (4)
  1. AVANDARYL [Suspect]
     Indication: DIABETES MELLITUS
     Route: 048
     Dates: start: 20050101, end: 20070807
  2. AMARYL [Concomitant]
  3. GLUCOTROL XL [Concomitant]
  4. AVANDIA [Suspect]
     Indication: DIABETES MELLITUS

REACTIONS (3)
  - CAROTID ARTERIOSCLEROSIS [None]
  - MYOCARDIAL INFARCTION [None]
  - CORONARY ARTERY DISEASE [None]
